FAERS Safety Report 6716661-8 (Version None)
Quarter: 2010Q2

REPORT INFORMATION
  Report Type: 
  Country: None (occurrence: None)
  Receive Date: 20100510
  Receipt Date: 20100429
  Transmission Date: 20101027
  Serious: Yes (Hospitalization)
  Sender: FDA-Public Use
  Company Number: DE-BIOGENIDEC-2010BI006980

PATIENT
  Age: 40 Year
  Sex: Female
  Weight: 50 kg

DRUGS (5)
  1. TYSABRI [Suspect]
     Indication: RELAPSING-REMITTING MULTIPLE SCLEROSIS
     Route: 042
     Dates: start: 20080301
  2. CHLORPROTHIXEN [Concomitant]
     Indication: SLEEP DISORDER
     Route: 048
     Dates: start: 20050701
  3. OPIPRAMOL [Concomitant]
     Indication: RESTLESSNESS
     Route: 048
  4. OPIPRAMOL [Concomitant]
     Indication: DEPRESSION
     Route: 048
  5. SULPIRID [Concomitant]
     Indication: VERTIGO
     Route: 048

REACTIONS (2)
  - CERVIX CARCINOMA STAGE 0 [None]
  - LEUKOCYTOSIS [None]
